FAERS Safety Report 16056755 (Version 4)
Quarter: 2019Q3

REPORT INFORMATION
  Report Type: Report from Study
  Country: AU (occurrence: AU)
  Receive Date: 20190311
  Receipt Date: 20190905
  Transmission Date: 20191004
  Serious: Yes (Death, Hospitalization, Other)
  Sender: FDA-Public Use
  Company Number: PHHY2019AU028897

PATIENT
  Age: 65 Year
  Sex: Female
  Weight: 56 kg

DRUGS (16)
  1. THYROXINE SODIUM [Concomitant]
     Active Substance: LEVOTHYROXINE SODIUM
     Dosage: 0.05 MG, ONCE A WEEK ON FRIDAYS
     Route: 048
  2. THYROXINE SODIUM [Concomitant]
     Active Substance: LEVOTHYROXINE SODIUM
     Indication: PRODUCT USED FOR UNKNOWN INDICATION
     Dosage: 0.1 MG (100 MCG), QD DAILY IN THE MORNING (BEFORE FOOD)
     Route: 048
  3. ASCORBIC ACID. [Concomitant]
     Active Substance: ASCORBIC ACID
     Indication: PRODUCT USED FOR UNKNOWN INDICATION
     Dosage: 1 DF, QD (DAILY IN MORNING)
     Route: 048
  4. KRILL OIL [Concomitant]
     Active Substance: DIETARY SUPPLEMENT\KRILL OIL
     Indication: PRODUCT USED FOR UNKNOWN INDICATION
     Dosage: 1 DF, QD (DAILY IN THE MORNING (WITH OR AFTER FOOD))
     Route: 048
  5. LENVATINIB [Concomitant]
     Active Substance: LENVATINIB
     Dosage: 10 MG, QD
     Route: 065
     Dates: start: 201804
  6. CEFALEXIN [Concomitant]
     Active Substance: CEPHALEXIN
     Indication: PRODUCT USED FOR UNKNOWN INDICATION
     Route: 065
  7. VITAMIN K2 [Concomitant]
     Active Substance: MENAQUINONE 6
     Indication: PRODUCT USED FOR UNKNOWN INDICATION
     Dosage: 1 DF, QD (DAILY IN THE MORNING) (TAKEN WITH CALCIUM TO AID ABSORPTION)
     Route: 048
  8. TRAMETINIB [Suspect]
     Active Substance: TRAMETINIB
     Indication: PAPILLARY THYROID CANCER
     Dosage: 2 MG, QD
     Route: 048
     Dates: start: 20190115
  9. DABRAFENIB [Suspect]
     Active Substance: DABRAFENIB
     Dosage: 150 MG, BID
     Route: 048
     Dates: start: 20190123, end: 20190203
  10. PHYTOMENADIONE [Concomitant]
     Active Substance: PHYTONADIONE
     Indication: PRODUCT USED FOR UNKNOWN INDICATION
     Dosage: 10 MG, UNK
     Route: 048
  11. VENTOLIN [Concomitant]
     Active Substance: ALBUTEROL SULFATE
     Indication: DYSPNOEA
     Dosage: 2 PUFF(S), PRN (EVERY 4 HOURS)
     Route: 055
  12. TRAMETINIB [Suspect]
     Active Substance: TRAMETINIB
     Dosage: 2 MG, QD
     Route: 048
     Dates: start: 20190123, end: 20190203
  13. THYROXINE SODIUM [Concomitant]
     Active Substance: LEVOTHYROXINE SODIUM
     Dosage: 100UG DAILY EXCEPT FOR MONDAY-150UG
     Route: 065
  14. CENOVIS MULTIVITAMIN AND MINERALS [Concomitant]
     Indication: PRODUCT USED FOR UNKNOWN INDICATION
     Dosage: 1 DF, QD
     Route: 048
  15. LENVATINIB [Concomitant]
     Active Substance: LENVATINIB
     Indication: PRODUCT USED FOR UNKNOWN INDICATION
     Dosage: 24 MG, QD
     Route: 065
     Dates: start: 201601
  16. DABRAFENIB [Suspect]
     Active Substance: DABRAFENIB
     Indication: PAPILLARY THYROID CANCER
     Dosage: 150 MG, BID
     Route: 048
     Dates: start: 20190115

REACTIONS (61)
  - Dysphagia [Fatal]
  - Monocyte count increased [Unknown]
  - Haemoglobin decreased [Unknown]
  - Food intolerance [Unknown]
  - Papillary thyroid cancer [Fatal]
  - Malignant neoplasm progression [Fatal]
  - Lower respiratory tract infection [Recovering/Resolving]
  - Pleural effusion [Not Recovered/Not Resolved]
  - Flatulence [Unknown]
  - Blood sodium decreased [Unknown]
  - White blood cell count increased [Unknown]
  - Mean platelet volume decreased [Unknown]
  - Red blood cell count decreased [Unknown]
  - Vocal cord paralysis [Unknown]
  - Stridor [Unknown]
  - Pneumonia aspiration [Unknown]
  - Lymphadenopathy [Recovering/Resolving]
  - Dysphonia [Unknown]
  - Blood creatinine decreased [Unknown]
  - C-reactive protein increased [Unknown]
  - Aspartate aminotransferase increased [Unknown]
  - Blood pressure systolic decreased [Recovering/Resolving]
  - Aspiration [Not Recovered/Not Resolved]
  - Device occlusion [Not Recovered/Not Resolved]
  - Metastases to the respiratory system [Unknown]
  - Pulmonary mass [Not Recovered/Not Resolved]
  - Pleural thickening [Recovering/Resolving]
  - Pyrexia [Unknown]
  - Oesophageal dilatation [Unknown]
  - Blood potassium decreased [Unknown]
  - Platelet count increased [Unknown]
  - Ill-defined disorder [Unknown]
  - Degenerative bone disease [Unknown]
  - Lymphocyte count decreased [Unknown]
  - Oesophageal disorder [Unknown]
  - Bronchial disorder [Unknown]
  - Tracheo-oesophageal fistula [Not Recovered/Not Resolved]
  - Tracheal stenosis [Unknown]
  - Atelectasis [Unknown]
  - Productive cough [Recovering/Resolving]
  - Respiratory arrest [Unknown]
  - Fatigue [Unknown]
  - Hilar lymphadenopathy [Not Recovered/Not Resolved]
  - Blood urea decreased [Unknown]
  - Globulins increased [Unknown]
  - Red cell distribution width increased [Unknown]
  - Lung consolidation [Unknown]
  - Respiratory distress [Unknown]
  - Contrast media deposition [Unknown]
  - Infection [Unknown]
  - Neutrophil count increased [Unknown]
  - Gamma-glutamyltransferase increased [Unknown]
  - Blood alkaline phosphatase increased [Unknown]
  - Anaplastic thyroid cancer [Fatal]
  - Sputum discoloured [Not Recovered/Not Resolved]
  - Sputum purulent [Not Recovered/Not Resolved]
  - Vocal cord disorder [Unknown]
  - Blood albumin decreased [Unknown]
  - Blood calcium decreased [Unknown]
  - Procedural vomiting [Unknown]
  - Blood glucose increased [Unknown]

NARRATIVE: CASE EVENT DATE: 20190124
